FAERS Safety Report 8152120 (Version 5)
Quarter: 2012Q4

REPORT INFORMATION
  Report Type: 
  Country: US (occurrence: US)
  Receive Date: 20110922
  Receipt Date: 20121226
  Transmission Date: 20130627
  Serious: Yes (Hospitalization)
  Sender: FDA-Public Use
  Company Number: US-ASTRAZENECA-2010SE26764

PATIENT
  Age: 51 Year
  Sex: Female
  Weight: 99.8 kg

DRUGS (14)
  1. SEROQUEL [Suspect]
     Indication: AGITATION
     Route: 048
  2. SEROQUEL [Suspect]
     Indication: BIPOLAR DISORDER
     Route: 048
  3. SEROQUEL [Suspect]
     Indication: AGITATION
     Route: 048
  4. SEROQUEL [Suspect]
     Indication: BIPOLAR DISORDER
     Route: 048
  5. SEROQUEL [Suspect]
     Indication: AGITATION
     Route: 048
  6. SEROQUEL [Suspect]
     Indication: BIPOLAR DISORDER
     Route: 048
  7. SEROQUEL [Suspect]
     Indication: AGITATION
     Route: 048
  8. SEROQUEL [Suspect]
     Indication: BIPOLAR DISORDER
     Dosage: UNSPECIFIED
     Route: 048
  9. SEROQUEL [Suspect]
     Indication: AGITATION
     Dosage: UNSPECIFIED
     Route: 048
  10. SEROQUEL [Suspect]
     Indication: BIPOLAR DISORDER
     Dosage: 200MG AND 50MG
     Route: 048
  11. SEROQUEL [Suspect]
     Indication: AGITATION
     Dosage: 200MG AND 50MG
     Route: 048
  12. SEROQUEL [Suspect]
     Indication: BIPOLAR DISORDER
     Route: 048
  13. SEROQUEL [Suspect]
     Indication: AGITATION
     Route: 048
  14. SEROQUEL [Suspect]
     Indication: BIPOLAR DISORDER
     Route: 048

REACTIONS (9)
  - Drug withdrawal syndrome [Unknown]
  - Amnesia [Unknown]
  - Amnesia [Unknown]
  - Malaise [Unknown]
  - Mania [Unknown]
  - Migraine [Unknown]
  - Bipolar disorder [Unknown]
  - Sinusitis [Unknown]
  - Drug dose omission [Unknown]
